FAERS Safety Report 20291777 (Version 4)
Quarter: 2022Q1

REPORT INFORMATION
  Report Type: Spontaneous
  Country: US (occurrence: US)
  Receive Date: 20220104
  Receipt Date: 20220310
  Transmission Date: 20220423
  Serious: Yes (Hospitalization, Other)
  Sender: FDA-Public Use
  Company Number: US-INCYTE CORPORATION-2021IN011140

PATIENT

DRUGS (6)
  1. JAKAFI [Suspect]
     Active Substance: RUXOLITINIB
     Dosage: 5 MILLIGRAM, BID
     Route: 048
     Dates: start: 20211104
  2. JAKAFI [Suspect]
     Active Substance: RUXOLITINIB
     Dosage: 5 MILLIGRAM, BID
     Route: 048
     Dates: start: 20211104
  3. JAKAFI [Suspect]
     Active Substance: RUXOLITINIB
     Dosage: 10 MILLIGRAM DAILY
     Route: 048
     Dates: start: 20211104
  4. JAKAFI [Suspect]
     Active Substance: RUXOLITINIB
     Dosage: 5 MILLIGRAM, QD
     Route: 048
     Dates: start: 20220127
  5. JAKAFI [Suspect]
     Active Substance: RUXOLITINIB
     Dosage: 10 MG, TAKE ONE TABLET BY MOUTH ONCE A DAY AS DIRECTED, 5MG, TAKE ONE TABLET BY MOUTH ONCE A DAY AT
     Route: 048
     Dates: start: 20211104
  6. JAKAFI [Suspect]
     Active Substance: RUXOLITINIB
     Dosage: 10 MG, TAKE ONE TABLET BY MOUTH ONCE A DAY AS DIRECTED, 5MG, TAKE ONE TABLET BY MOUTH ONCE A DAY AT
     Route: 048
     Dates: start: 20211104

REACTIONS (7)
  - Loss of consciousness [Unknown]
  - Head injury [Unknown]
  - Infection [Unknown]
  - Abdominal pain upper [Unknown]
  - Fatigue [Unknown]
  - Skin laceration [Unknown]
  - Dizziness [Unknown]
